FAERS Safety Report 16864785 (Version 1)
Quarter: 2019Q3

REPORT INFORMATION
  Report Type: Spontaneous
  Country: US (occurrence: US)
  Receive Date: 20190929
  Receipt Date: 20190929
  Transmission Date: 20191005
  Serious: No
  Sender: FDA-Public Use
  Company Number: US-009507513-1909USA014555

PATIENT
  Sex: Female

DRUGS (1)
  1. PEGINTRON [Suspect]
     Active Substance: PEGINTERFERON ALFA-2B
     Indication: NEOPLASM
     Dosage: 80 MICROGRAM, WEEKLY
     Route: 058
     Dates: start: 20190810

REACTIONS (3)
  - Somnolence [Unknown]
  - Alopecia [Unknown]
  - Fatigue [Unknown]
